FAERS Safety Report 5110325-2 (Version None)
Quarter: 2006Q3

REPORT INFORMATION
  Report Type: 
  Country: None (occurrence: None)
  Receive Date: 20060915
  Receipt Date: 20060831
  Transmission Date: 20061208
  Serious: Yes (Other)
  Sender: FDA-Public Use
  Company Number: STI-2006-00586

PATIENT
  Age: 46 Year
  Sex: Female

DRUGS (2)
  1. DUAC [Suspect]
     Indication: ACNE
     Dosage: 2 APP (1 APP, 2 IN 1 DAYS) TOPICAL
     Route: 061
     Dates: start: 20060825, end: 20060827
  2. DIFFERIN [Concomitant]

REACTIONS (5)
  - DYSPNOEA [None]
  - ERYTHEMA [None]
  - OVERDOSE [None]
  - PRURITUS [None]
  - SWELLING [None]
